FAERS Safety Report 6767108-7 (Version None)
Quarter: 2010Q2

REPORT INFORMATION
  Report Type: 
  Country: None (occurrence: None)
  Receive Date: 20100614
  Receipt Date: 20100603
  Transmission Date: 20101027
  Serious: No
  Sender: FDA-Public Use
  Company Number: US-JNJFOC-20100601820

PATIENT
  Sex: Male

DRUGS (3)
  1. FENTANYL [Suspect]
     Indication: BACK PAIN
     Route: 062
  2. FENTANYL [Suspect]
     Route: 062
  3. XANAX [Concomitant]
     Indication: ANXIETY
     Route: 048

REACTIONS (6)
  - DECREASED APPETITE [None]
  - FORMICATION [None]
  - INCORRECT DRUG ADMINISTRATION RATE [None]
  - INSOMNIA [None]
  - WEIGHT DECREASED [None]
  - WITHDRAWAL SYNDROME [None]
